FAERS Safety Report 11170427 (Version 2)
Quarter: 2015Q2

REPORT INFORMATION
  Report Type: Spontaneous
  Country: FR (occurrence: FR)
  Receive Date: 20150608
  Receipt Date: 20150626
  Transmission Date: 20150821
  Serious: Yes (Hospitalization)
  Sender: FDA-Public Use
  Company Number: FR-TEVA-568335ISR

PATIENT
  Age: 16 Year
  Sex: Female

DRUGS (4)
  1. CARBAMAZEPINE. [Interacting]
     Active Substance: CARBAMAZEPINE
     Route: 065
  2. RISPERIDONE. [Interacting]
     Active Substance: RISPERIDONE
     Indication: ACUTE PSYCHOSIS
     Route: 048
  3. CARBAMAZEPINE. [Suspect]
     Active Substance: CARBAMAZEPINE
     Indication: MANIA
     Dosage: THEN INCREASED TO 400MG TWICE DAILY ON DAY 2
     Route: 065
  4. LOXAPINE. [Interacting]
     Active Substance: LOXAPINE
     Indication: ACUTE PSYCHOSIS
     Route: 048

REACTIONS (4)
  - Vision blurred [Recovering/Resolving]
  - Drug interaction [Recovering/Resolving]
  - Asthenia [Recovering/Resolving]
  - Overdose [Recovering/Resolving]
